FAERS Safety Report 23908374 (Version 1)
Quarter: 2024Q2

REPORT INFORMATION
  Report Type: Spontaneous
  Country: CA (occurrence: CA)
  Receive Date: 20240528
  Receipt Date: 20240528
  Transmission Date: 20240716
  Serious: Yes (Other)
  Sender: FDA-Public Use
  Company Number: CA-AUROBINDO-AUR-APL-2024-025148

PATIENT
  Age: 56 Year
  Sex: Female

DRUGS (11)
  1. METHOTREXATE [Suspect]
     Active Substance: METHOTREXATE
     Indication: Product used for unknown indication
     Dosage: UNK
     Route: 065
  2. BENADRYL [Concomitant]
     Active Substance: DIPHENHYDRAMINE HYDROCHLORIDE
     Indication: Premedication
     Dosage: UNK
     Route: 065
  3. CANDESARTAN [Concomitant]
     Active Substance: CANDESARTAN
     Indication: Product used for unknown indication
     Dosage: 4.0 MILLIGRAM
     Route: 065
  4. CHOLESTYRAMINE [Concomitant]
     Active Substance: CHOLESTYRAMINE
     Indication: Product used for unknown indication
     Dosage: 4.0 GRAM
     Route: 065
  5. DIMETHYL SULFOXIDE [Concomitant]
     Active Substance: DIMETHYL SULFOXIDE
     Indication: Product used for unknown indication
     Dosage: 200.0 MILLIGRAM
     Route: 065
  6. ENTYVIO [Concomitant]
     Active Substance: VEDOLIZUMAB
     Indication: Crohn^s disease
     Dosage: 300.0 MILLIGRAM
     Route: 065
  7. ENTYVIO [Concomitant]
     Active Substance: VEDOLIZUMAB
     Dosage: 108.0 MILLIGRAM, CYCLICAL
     Route: 065
  8. HYDROCHLOROTHIAZIDE [Concomitant]
     Active Substance: HYDROCHLOROTHIAZIDE
     Indication: Crohn^s disease
     Dosage: 250.0 MILLIGRAM
     Route: 065
  9. HYDROCORTISONE [Concomitant]
     Active Substance: HYDROCORTISONE
     Indication: Premedication
     Dosage: UNK
     Route: 065
  10. MESALAMINE [Concomitant]
     Active Substance: MESALAMINE
     Indication: Product used for unknown indication
     Dosage: 4.0 GRAM, ONCE A DAY
     Route: 065
  11. OMEPRAZOLE [Concomitant]
     Active Substance: DONEPEZIL HYDROCHLORIDE\OMEPRAZOLE\OMEPRAZOLE MAGNESIUM
     Indication: Product used for unknown indication
     Dosage: 20.0 MILLIGRAM
     Route: 065

REACTIONS (42)
  - Anxiety [Recovered/Resolved]
  - Abdominal distension [Recovered/Resolved]
  - Abdominal pain [Recovered/Resolved]
  - Blood pressure decreased [Recovered/Resolved]
  - Blood pressure increased [Recovered/Resolved]
  - Cough [Recovered/Resolved]
  - Dehydration [Recovered/Resolved]
  - Diabetes mellitus [Recovered/Resolved]
  - Diarrhoea [Recovered/Resolved]
  - Drug ineffective [Recovered/Resolved]
  - Dyspnoea [Recovered/Resolved]
  - Ear congestion [Recovered/Resolved]
  - Fatigue [Recovered/Resolved]
  - Fluid retention [Recovered/Resolved]
  - Inflammation [Recovered/Resolved]
  - Gastrooesophageal reflux disease [Recovered/Resolved]
  - Headache [Recovered/Resolved]
  - Hepatic enzyme increased [Recovered/Resolved]
  - Hepatic steatosis [Recovered/Resolved]
  - Hot flush [Recovered/Resolved]
  - Hyperhidrosis [Recovered/Resolved]
  - Hyperlipidaemia [Recovered/Resolved]
  - Incorrect dose administered [Recovered/Resolved]
  - Influenza [Recovered/Resolved]
  - Influenza like illness [Recovered/Resolved]
  - Injection site extravasation [Recovered/Resolved]
  - Limb discomfort [Recovered/Resolved]
  - Liver function test increased [Recovered/Resolved]
  - Nasal congestion [Recovered/Resolved]
  - Nausea [Recovered/Resolved]
  - Neutrophil count increased [Recovered/Resolved]
  - Oedema peripheral [Recovered/Resolved]
  - Osteopenia [Recovered/Resolved]
  - Pain [Recovered/Resolved]
  - Palpitations [Recovered/Resolved]
  - Peripheral swelling [Recovered/Resolved]
  - Proctalgia [Recovered/Resolved]
  - Pyrexia [Recovered/Resolved]
  - Renal impairment [Recovered/Resolved]
  - Swelling face [Recovered/Resolved]
  - White blood cell count increased [Recovered/Resolved]
  - Tinnitus [Recovered/Resolved]
